FAERS Safety Report 9664786 (Version 1)
Quarter: 2013Q4

REPORT INFORMATION
  Report Type: Spontaneous
  Country: GB (occurrence: None)
  Receive Date: 20131031
  Receipt Date: 20131031
  Transmission Date: 20140711
  Serious: Yes (Life-Threatening, Hospitalization)
  Sender: FDA-Public Use
  Company Number: AUR-APL-2013-08922

PATIENT
  Age: 57 Year
  Sex: Female

DRUGS (10)
  1. FLUOXETINE (FLUOXETINE) [Suspect]
     Indication: DEPRESSION
     Route: 048
     Dates: end: 20130314
  2. ITRACONAZOLE [Suspect]
     Indication: ASPERGILLUS INFECTION
     Route: 048
     Dates: start: 20130125, end: 20130311
  3. CARBOCISTEINE (CARBOCISTEINE) [Concomitant]
  4. MONTELUKAST (MONTELUKAST) [Suspect]
  5. OMEPRAZOLE (OMEPRAZOLE) [Concomitant]
  6. RUPATADINE [Suspect]
     Dosage: 10MG (10MG 1 IN 1 D), ORAL
     Route: 048
     Dates: end: 20130314
  7. SALBUTAMOL SALBUTAMOL) [Concomitant]
  8. SODIUM CHLORIDE [Concomitant]
  9. SYMBICORT [Concomitant]
  10. UNIPHYLLIN CONTINUS (THEOPHLLINE) [Concomitant]

REACTIONS (7)
  - Syncope [None]
  - Unresponsive to stimuli [None]
  - Convulsion [None]
  - Urinary tract infection [None]
  - Electrocardiogram QT prolonged [None]
  - Cardiac arrest [None]
  - Ventricular fibrillation [None]
